FAERS Safety Report 12337854 (Version 2)
Quarter: 2016Q2

REPORT INFORMATION
  Report Type: Spontaneous
  Country: TR (occurrence: TR)
  Receive Date: 20160505
  Receipt Date: 20160511
  Transmission Date: 20160815
  Serious: Yes (Other)
  Sender: FDA-Public Use
  Company Number: TR-UCBSA-2016016254

PATIENT
  Age: 23 Month
  Sex: Female

DRUGS (4)
  1. KEPPRA [Suspect]
     Active Substance: LEVETIRACETAM
     Indication: TONIC CONVULSION
     Dosage: UNKNOWN DOSE
  2. PHENOBARBITAL. [Concomitant]
     Active Substance: PHENOBARBITAL
     Indication: TONIC CONVULSION
     Dosage: UNKNOWN DOSE
  3. KEPPRA [Suspect]
     Active Substance: LEVETIRACETAM
     Indication: OFF LABEL USE
  4. CARNITINE [Concomitant]
     Active Substance: CARNITINE
     Indication: CARNITINE DEFICIENCY
     Dosage: UNKNOWN DOSE

REACTIONS (4)
  - Off label use [Unknown]
  - Tonic convulsion [Unknown]
  - Status epilepticus [Unknown]
  - Drug ineffective [Unknown]
